FAERS Safety Report 12521701 (Version 2)
Quarter: 2016Q3

REPORT INFORMATION
  Report Type: Spontaneous
  Country: DE (occurrence: DE)
  Receive Date: 20160701
  Receipt Date: 20160712
  Transmission Date: 20161109
  Serious: Yes (Other)
  Sender: FDA-Public Use
  Company Number: DE-GE HEALTHCARE MEDICAL DIAGNOSTICS-OSCN-PR-1606S-0096

PATIENT

DRUGS (2)
  1. OMNISCAN [Suspect]
     Active Substance: GADODIAMIDE
     Indication: PRODUCT USED FOR UNKNOWN INDICATION
     Dosage: DOSE NOT REPORTED
     Route: 065
     Dates: start: 20160412, end: 20160412
  2. OMNISCAN [Suspect]
     Active Substance: GADODIAMIDE
     Indication: DIAGNOSTIC PROCEDURE

REACTIONS (22)
  - Asthenia [Recovered/Resolved]
  - Dizziness [Recovered/Resolved]
  - Blister [Recovered/Resolved]
  - Pain of skin [Recovered/Resolved]
  - Back pain [Recovered/Resolved]
  - Hot flush [Recovered/Resolved]
  - Dyspnoea [Recovered/Resolved]
  - Visual impairment [Recovered/Resolved]
  - Confusional state [Recovered/Resolved]
  - Skin burning sensation [Recovered/Resolved]
  - Abdominal discomfort [Recovered/Resolved]
  - Sneezing [Recovered/Resolved]
  - Sense of oppression [Not Recovered/Not Resolved]
  - Skin exfoliation [Recovered/Resolved]
  - Cardiovascular disorder [Recovered/Resolved]
  - Angina pectoris [Not Recovered/Not Resolved]
  - Erythema [Recovered/Resolved]
  - Musculoskeletal pain [Recovered/Resolved]
  - Chills [Recovered/Resolved]
  - Bladder discomfort [Recovered/Resolved]
  - Skin discolouration [Recovered/Resolved]
  - Arthralgia [Recovered/Resolved]

NARRATIVE: CASE EVENT DATE: 201606
